FAERS Safety Report 8385151-1 (Version None)
Quarter: 2012Q2

REPORT INFORMATION
  Report Type: 
  Country: None (occurrence: None)
  Receive Date: 20120524
  Receipt Date: 20120518
  Transmission Date: 20120825
  Serious: Yes (Hospitalization)
  Sender: FDA-Public Use
  Company Number: US-AMGEN-USASP2010012214

PATIENT
  Age: 57 Year
  Sex: Female

DRUGS (2)
  1. ENBREL [Suspect]
     Indication: RHEUMATOID ARTHRITIS
     Dosage: 50 MG, QWK
     Dates: end: 20120208
  2. ENBREL [Suspect]
     Dosage: 50 MG, QWK
     Dates: start: 20100223, end: 20101101

REACTIONS (17)
  - COUGH [None]
  - MUSCULOSKELETAL STIFFNESS [None]
  - DIARRHOEA [None]
  - VOMITING [None]
  - MIGRAINE [None]
  - PAIN [None]
  - ARTHRALGIA [None]
  - RASH MACULAR [None]
  - OEDEMA PERIPHERAL [None]
  - MUSCLE SPASMS [None]
  - JOINT RANGE OF MOTION DECREASED [None]
  - GAIT DISTURBANCE [None]
  - COLD SWEAT [None]
  - JOINT SWELLING [None]
  - NAUSEA [None]
  - ERYTHEMA [None]
  - PYREXIA [None]
